FAERS Safety Report 14467916 (Version 1)
Quarter: 2018Q1

REPORT INFORMATION
  Report Type: Spontaneous
  Country: US (occurrence: US)
  Receive Date: 20180131
  Receipt Date: 20180131
  Transmission Date: 20180509
  Serious: No
  Sender: FDA-Public Use
  Company Number: US-PFIZER INC-2018035643

PATIENT
  Age: 54 Year
  Sex: Male

DRUGS (1)
  1. REVATIO [Suspect]
     Active Substance: SILDENAFIL CITRATE

REACTIONS (4)
  - Mouth swelling [Unknown]
  - Lip swelling [Unknown]
  - Swollen tongue [Unknown]
  - Drug hypersensitivity [Unknown]
